FAERS Safety Report 15137287 (Version 1)
Quarter: 2018Q3

REPORT INFORMATION
  Report Type: Spontaneous
  Country: US (occurrence: US)
  Receive Date: 20180712
  Receipt Date: 20180712
  Transmission Date: 20181010
  Serious: No
  Sender: FDA-Public Use
  Company Number: US-NOVOPROD-602819

PATIENT
  Age: 63 Year
  Sex: Female

DRUGS (2)
  1. TRESIBA FLEXTOUCH U200 [Suspect]
     Active Substance: INSULIN DEGLUDEC
     Dosage: 40 U, BID
     Route: 058
     Dates: start: 20180428, end: 20180523
  2. TRESIBA FLEXTOUCH U200 [Suspect]
     Active Substance: INSULIN DEGLUDEC
     Indication: TYPE 2 DIABETES MELLITUS
     Dosage: 80 U, BID
     Route: 058
     Dates: start: 20180428, end: 20180523

REACTIONS (6)
  - Asthenia [Not Recovered/Not Resolved]
  - Product use issue [Not Recovered/Not Resolved]
  - Blood glucose increased [Recovered/Resolved]
  - Nasopharyngitis [Not Recovered/Not Resolved]
  - Decreased appetite [Not Recovered/Not Resolved]
  - Nausea [Not Recovered/Not Resolved]

NARRATIVE: CASE EVENT DATE: 20180427
